FAERS Safety Report 23028349 (Version 2)
Quarter: 2023Q4

REPORT INFORMATION
  Report Type: Spontaneous
  Country: US (occurrence: US)
  Receive Date: 20231004
  Receipt Date: 20231130
  Transmission Date: 20240110
  Serious: No
  Sender: FDA-Public Use
  Company Number: US-BIOVITRUM-2023-US-015407

PATIENT
  Age: 11 Month
  Sex: Female
  Weight: 5 kg

DRUGS (5)
  1. SYNAGIS [Suspect]
     Active Substance: PALIVIZUMAB
     Indication: Antiviral prophylaxis
     Dosage: INJECT 15MG/KG INTRAMUSCULARLY EVERY 28 DAYS. (DOSE TO BE CALCULATED AT TIME OF INJECTION, BASED ON
     Route: 030
     Dates: start: 20230917
  2. SYNAGIS [Suspect]
     Active Substance: PALIVIZUMAB
     Indication: Premature baby
  3. LASIX [Concomitant]
     Active Substance: FUROSEMIDE
     Indication: Product used for unknown indication
  4. POLY-VI-FLOR/IRON [Concomitant]
     Indication: Product used for unknown indication
  5. LACTOSE [Concomitant]
     Active Substance: LACTOSE
     Indication: Product used for unknown indication

REACTIONS (2)
  - Growth disorder [Unknown]
  - Respiratory syncytial virus test positive [Unknown]
